FAERS Safety Report 7255791-1 (Version None)
Quarter: 2011Q1

REPORT INFORMATION
  Report Type: 
  Country: None (occurrence: None)
  Receive Date: 20110129
  Receipt Date: 20100826
  Transmission Date: 20110831
  Serious: No
  Sender: FDA-Public Use
  Company Number: US-ABBOTT-10P-163-0667983-00

PATIENT
  Sex: Female
  Weight: 57.658 kg

DRUGS (20)
  1. DIAZEPAM [Concomitant]
     Indication: VERTIGO
  2. HYDROCODONE [Concomitant]
     Indication: PAIN IN EXTREMITY
  3. SYNTHROID [Concomitant]
     Indication: HYPOTHYROIDISM
     Dates: start: 20000101
  4. PROMETHAZINE [Concomitant]
     Indication: NAUSEA
  5. SULFASALAZINE [Concomitant]
     Indication: ANKYLOSING SPONDYLITIS
  6. LEVSIN [Concomitant]
     Indication: IRRITABLE BOWEL SYNDROME
  7. VITAMIN E [Concomitant]
     Indication: VITAMIN SUPPLEMENTATION
  8. GLUCOSAMINE [Concomitant]
     Indication: SUPPLEMENTATION THERAPY
  9. BUPROPION [Concomitant]
     Indication: ANTIDEPRESSANT THERAPY
  10. MUCINEX [Concomitant]
     Indication: PRODUCT USED FOR UNKNOWN INDICATION
     Dosage: 6 AM + 6 PM
  11. CLARITIN [Concomitant]
     Indication: HYPERSENSITIVITY
  12. CALTRATE + D [Concomitant]
     Indication: MINERAL SUPPLEMENTATION
  13. MECLIZINE [Concomitant]
     Indication: VERTIGO
  14. NASACORT [Concomitant]
     Indication: HYPERSENSITIVITY
  15. HUMIRA [Suspect]
     Indication: ANKYLOSING SPONDYLITIS
     Dates: start: 20090101
  16. CRESTOR [Concomitant]
     Indication: BLOOD CHOLESTEROL INCREASED
  17. LYRICA [Concomitant]
     Indication: FIBROMYALGIA
     Dosage: 50MG IN THE MORNING, 75MG IN THE EVENING
     Dates: start: 20090101
  18. ZYRTEC [Concomitant]
     Indication: HYPERSENSITIVITY
  19. SKELAXIN [Concomitant]
     Indication: FIBROMYALGIA
  20. VITAMIN D [Concomitant]
     Indication: VITAMIN SUPPLEMENTATION

REACTIONS (16)
  - UPPER RESPIRATORY TRACT INFECTION [None]
  - MALAISE [None]
  - CHEST PAIN [None]
  - HAIR DISORDER [None]
  - INCREASED BRONCHIAL SECRETION [None]
  - WHEEZING [None]
  - NAUSEA [None]
  - DIZZINESS [None]
  - OROPHARYNGEAL PAIN [None]
  - COUGH [None]
  - RASH [None]
  - VERTIGO [None]
  - HEADACHE [None]
  - EAR PAIN [None]
  - BRONCHITIS [None]
  - DRUG DOSE OMISSION [None]
